FAERS Safety Report 7130864-2 (Version None)
Quarter: 2010Q4

REPORT INFORMATION
  Report Type: 
  Country: None (occurrence: None)
  Receive Date: 20101201
  Receipt Date: 20101124
  Transmission Date: 20110411
  Serious: Yes (Hospitalization)
  Sender: FDA-Public Use
  Company Number: US-B.I. PHARMACEUTICALS,INC./RIDGEFIELD-2010-BP-13301BP

PATIENT
  Sex: Male

DRUGS (7)
  1. AGGRENOX [Suspect]
     Indication: CEREBROVASCULAR ACCIDENT
     Route: 048
     Dates: start: 20100629, end: 20101110
  2. METOPROLOL [Concomitant]
     Indication: HYPERTENSION
  3. HYDROCHLOROTHIAZIDE [Concomitant]
     Indication: HYPERTENSION
  4. NIFEDIPINE [Concomitant]
     Indication: HYPERTENSION
  5. GLIPIZIDE [Concomitant]
     Indication: TYPE 2 DIABETES MELLITUS
  6. SIMVASTATIN [Concomitant]
     Indication: BLOOD CHOLESTEROL INCREASED
  7. ALLOPURINOL [Concomitant]
     Indication: GOUT

REACTIONS (1)
  - CEREBROVASCULAR ACCIDENT [None]
